FAERS Safety Report 12165608 (Version 1)
Quarter: 2016Q1

REPORT INFORMATION
  Report Type: Spontaneous
  Country: US (occurrence: US)
  Receive Date: 20160309
  Receipt Date: 20160309
  Transmission Date: 20160526
  Serious: Yes (Other)
  Sender: FDA-Public Use
  Company Number: US-BAYER-2016-046809

PATIENT
  Age: 33 Year
  Sex: Female

DRUGS (1)
  1. MIRENA [Suspect]
     Active Substance: LEVONORGESTREL
     Indication: CONTRACEPTION
     Dosage: UNK
     Dates: start: 20151104, end: 20160222

REACTIONS (8)
  - Fatigue [Recovering/Resolving]
  - Weight increased [Recovering/Resolving]
  - Malaise [None]
  - Embedded device [None]
  - Device difficult to use [None]
  - Cyst [None]
  - Uterine leiomyoma [None]
  - Dizziness [Recovered/Resolved]

NARRATIVE: CASE EVENT DATE: 201601
